FAERS Safety Report 17452774 (Version 2)
Quarter: 2020Q1

REPORT INFORMATION
  Report Type: Spontaneous
  Country: US (occurrence: US)
  Receive Date: 20200224
  Receipt Date: 20200304
  Transmission Date: 20200409
  Serious: Yes (Hospitalization, Other)
  Sender: FDA-Public Use
  Company Number: US-AMGEN-USASP2020028235

PATIENT
  Age: 81 Year
  Sex: Female

DRUGS (6)
  1. PROLIA [Suspect]
     Active Substance: DENOSUMAB
     Indication: OSTEOPOROSIS POSTMENOPAUSAL
     Dosage: UNK
     Route: 065
  2. CALCIUM [Concomitant]
     Active Substance: CALCIUM
  3. FLONASE [Concomitant]
     Active Substance: FLUTICASONE PROPIONATE
  4. FLOVENT [Concomitant]
     Active Substance: FLUTICASONE PROPIONATE
  5. VITAMIN D [ERGOCALCIFEROL] [Concomitant]
     Active Substance: ERGOCALCIFEROL
  6. OCUVITE [ASCORBIC ACID;RETINOL;TOCOPHEROL] [Concomitant]

REACTIONS (9)
  - Thyroid disorder [Not Recovered/Not Resolved]
  - Blood parathyroid hormone abnormal [Not Recovered/Not Resolved]
  - Sepsis [Unknown]
  - Adrenal disorder [Not Recovered/Not Resolved]
  - Syncope [Unknown]
  - Fatigue [Unknown]
  - Pneumonia [Unknown]
  - Incontinence [Unknown]
  - Urinary tract infection [Unknown]
